FAERS Safety Report 7973498-X (Version None)
Quarter: 2011Q4

REPORT INFORMATION
  Report Type: 
  Country: None (occurrence: None)
  Receive Date: 20111201
  Receipt Date: 20111118
  Transmission Date: 20120403
  Serious: Yes (Hospitalization)
  Sender: FDA-Public Use
  Company Number: 2011SP050759

PATIENT
  Age: 78 Year
  Sex: Female

DRUGS (7)
  1. REMERON [Suspect]
     Indication: DEPRESSION
     Dosage: 30 MG;QD;PO
     Route: 048
     Dates: start: 20110601
  2. ALVESCO [Concomitant]
  3. INDACATEROL [Concomitant]
  4. SPIRIVA [Concomitant]
  5. ESCITALOPRAM OXALATE [Suspect]
     Indication: DEPRESSION
     Dosage: 20 MG;QD;PO ; 10 MG;QD;PO
     Route: 048
     Dates: start: 20111018, end: 20111019
  6. ESCITALOPRAM OXALATE [Suspect]
     Indication: DEPRESSION
     Dosage: 20 MG;QD;PO ; 10 MG;QD;PO
     Route: 048
     Dates: start: 20111020, end: 20111023
  7. OXYGEN [Concomitant]

REACTIONS (6)
  - DYSKINESIA [None]
  - HEART RATE INCREASED [None]
  - DYSTONIA [None]
  - TREMOR [None]
  - BUNDLE BRANCH BLOCK RIGHT [None]
  - STRESS [None]
